FAERS Safety Report 5809023-9 (Version None)
Quarter: 2008Q3

REPORT INFORMATION
  Report Type: 
  Country: None (occurrence: None)
  Receive Date: 20080710
  Receipt Date: 20080710
  Transmission Date: 20090109
  Serious: Yes (Other)
  Sender: FDA-Public Use
  Company Number: None

PATIENT
  Age: 14 Month
  Sex: Male
  Weight: 11.1 kg

DRUGS (1)
  1. ETOPOSIDE [Suspect]
     Indication: RETINOBLASTOMA
     Dosage: 51 MG Q24 HOUR IV
     Route: 042
     Dates: start: 20080228, end: 20080228

REACTIONS (8)
  - BLOOD PRESSURE DECREASED [None]
  - CRYING [None]
  - ERYTHEMA [None]
  - FLUSHING [None]
  - INFUSION RELATED REACTION [None]
  - IRRITABILITY [None]
  - SCREAMING [None]
  - VOMITING [None]
